FAERS Safety Report 4551205-0 (Version None)
Quarter: 2005Q1

REPORT INFORMATION
  Report Type: 
  Country: None (occurrence: None)
  Receive Date: 20050107
  Receipt Date: 20041222
  Transmission Date: 20050727
  Serious: Yes (Life-Threatening, Hospitalization, Other)
  Sender: FDA-Public Use
  Company Number: HQWYE175823DEC04

PATIENT
  Age: 54 Year
  Sex: Male
  Weight: 83.99 kg

DRUGS (5)
  1. ALAVERT D-12 (LORATADINE/PSEUDOEPHEDRINE, TABLET EXTENDED RELEASE) [Suspect]
     Indication: NASOPHARYNGITIS
     Dosage: 1 TAB ONCE, ORAL
     Route: 048
     Dates: start: 20041120, end: 20041120
  2. ALAVERT D-12 (LORATADINE/PSEUDOEPHEDRINE, TABLET EXTENDED RELEASE) [Suspect]
     Indication: SINUS HEADACHE
     Dosage: 1 TAB ONCE, ORAL
     Route: 048
     Dates: start: 20041120, end: 20041120
  3. SUDAFED 12 HOUR [Suspect]
     Indication: DRUG USE FOR UNKNOWN INDICATION
     Dosage: 120 MG
  4. TYLENOL [Concomitant]
  5. NYQUIL (DEXTROMETHORPHAN HYDROBROMIDE/DOXYLAMINE SUCCINATE/EPHEDRINE S [Concomitant]

REACTIONS (3)
  - DRUG INTERACTION [None]
  - VENTRICULAR FIBRILLATION [None]
  - VOMITING [None]
